FAERS Safety Report 5578781-3 (Version None)
Quarter: 2007Q4

REPORT INFORMATION
  Report Type: 
  Country: None (occurrence: None)
  Receive Date: 20071227
  Receipt Date: 20071227
  Transmission Date: 20080405
  Serious: Yes (Life-Threatening, Other)
  Sender: FDA-Public Use
  Company Number: None

PATIENT
  Age: 32 Year
  Sex: Female
  Weight: 58.9676 kg

DRUGS (3)
  1. BUDEPRION XL 300MG TEVA PHARMACEUTICALS [Suspect]
     Indication: DEPRESSION
     Dosage: 300MG  1 TABLET DAILY  PO
     Route: 048
     Dates: start: 20060201, end: 20070901
  2. BUDEPRION XL 300MG TEVA PHARMACEUTICALS [Suspect]
     Indication: SEASONAL AFFECTIVE DISORDER
     Dosage: 300MG  1 TABLET DAILY  PO
     Route: 048
     Dates: start: 20060201, end: 20070901
  3. ZOLOFT [Concomitant]

REACTIONS (10)
  - ANXIETY [None]
  - CONDITION AGGRAVATED [None]
  - DEPRESSED MOOD [None]
  - DEPRESSION [None]
  - GASTROINTESTINAL DISORDER [None]
  - HEADACHE [None]
  - ILL-DEFINED DISORDER [None]
  - MUSCLE SPASMS [None]
  - NAUSEA [None]
  - THERAPEUTIC RESPONSE UNEXPECTED WITH DRUG SUBSTITUTION [None]
